FAERS Safety Report 5915457-4 (Version None)
Quarter: 2008Q4

REPORT INFORMATION
  Report Type: 
  Country: None (occurrence: None)
  Receive Date: 20081010
  Receipt Date: 20081001
  Transmission Date: 20090506
  Serious: Yes (Other)
  Sender: FDA-Public Use
  Company Number: US-PFIZER INC-2008040504

PATIENT
  Sex: Male

DRUGS (2)
  1. BEXTRA [Suspect]
     Indication: PAIN MANAGEMENT
     Route: 048
     Dates: start: 20020601
  2. BEXTRA [Suspect]
     Indication: MUSCULOSKELETAL PAIN

REACTIONS (10)
  - ABDOMINAL DISCOMFORT [None]
  - ABDOMINAL PAIN UPPER [None]
  - BACK PAIN [None]
  - CARDIOVASCULAR DISORDER [None]
  - DRY MOUTH [None]
  - DYSPEPSIA [None]
  - EAR PAIN [None]
  - HEADACHE [None]
  - NECK PAIN [None]
  - RASH [None]
